FAERS Safety Report 4309466-9 (Version None)
Quarter: 2004Q1

REPORT INFORMATION
  Report Type: 
  Country: None (occurrence: None)
  Receive Date: 20040301
  Receipt Date: 20040220
  Transmission Date: 20041129
  Serious: Yes (Hospitalization)
  Sender: FDA-Public Use
  Company Number: PERI00204000494

PATIENT
  Age: 90 Year
  Sex: Female
  Weight: 45 kg

DRUGS (9)
  1. COVERSYL (PERINDOPRIL) [Suspect]
     Indication: ILL-DEFINED DISORDER
     Dosage: 4 MG DAILY PO
     Route: 048
     Dates: end: 20040120
  2. NEO-MERCAZOLE TAB [Suspect]
     Indication: ILL-DEFINED DISORDER
     Dosage: DAILY PO
     Route: 048
     Dates: start: 20031210, end: 20040120
  3. LORAZEPAM [Suspect]
     Indication: ILL-DEFINED DISORDER
     Dosage: 1 MG QD PO
     Route: 048
     Dates: end: 20040120
  4. ALDACTAZINE (ALDACTAZINE) [Suspect]
     Indication: ILL-DEFINED DISORDER
     Dosage: DAILY PO
     Route: 048
     Dates: end: 20040120
  5. LIPANTHYL (FINOFIBRATE) [Suspect]
     Indication: ILL-DEFINED DISORDER
     Dosage: 200 MG QD PO
     Route: 048
     Dates: end: 20040120
  6. SOTALOL HCL [Suspect]
     Indication: ILL-DEFINED DISORDER
     Dosage: 40 MG TID PO
     Route: 048
  7. MONICOR (ISOSORBIDE MONONITRATE) [Concomitant]
  8. POTASSIUM CHLORIDE [Concomitant]
  9. CALCIUM WITH VITAMIN D (CALCIUM WITH VITAMIN D) [Concomitant]

REACTIONS (4)
  - AGITATION [None]
  - AGRANULOCYTOSIS [None]
  - CHOLELITHIASIS [None]
  - FATIGUE [None]
